FAERS Safety Report 9360851 (Version 1)
Quarter: 2013Q2

REPORT INFORMATION
  Report Type: Spontaneous
  Country: US (occurrence: None)
  Receive Date: 20130620
  Receipt Date: 20130620
  Transmission Date: 20140414
  Serious: No
  Sender: FDA-Public Use
  Company Number: None

PATIENT
  Age: 54 Year
  Sex: Male
  Weight: 143.7 kg

DRUGS (1)
  1. HYDROCORTISONE/PRAMOXINE [Suspect]
     Indication: PAIN
     Dosage: 1% BID RECTAL
     Route: 054
     Dates: start: 20120619, end: 20120709

REACTIONS (1)
  - Sedation [None]
